FAERS Safety Report 24944384 (Version 4)
Quarter: 2025Q3

REPORT INFORMATION
  Report Type: Spontaneous
  Country: JP (occurrence: JP)
  Receive Date: 20250208
  Receipt Date: 20250718
  Transmission Date: 20251020
  Serious: Yes (Death, Other)
  Sender: AMGEN
  Company Number: JP-AMGEN-JPNSP2025022454

PATIENT
  Age: 2 Decade
  Sex: Male

DRUGS (3)
  1. BLINCYTO [Suspect]
     Active Substance: BLINATUMOMAB
     Indication: B precursor type acute leukaemia
     Route: 040
  2. ASPARAGINASE [Concomitant]
     Active Substance: ASPARAGINASE
  3. ONCOVIN [Concomitant]
     Active Substance: VINCRISTINE SULFATE

REACTIONS (4)
  - Condition aggravated [Fatal]
  - Blast cell count increased [Unknown]
  - Transformation to acute myeloid leukaemia [Unknown]
  - Drug ineffective [Unknown]
